FAERS Safety Report 13657184 (Version 2)
Quarter: 2017Q2

REPORT INFORMATION
  Report Type: Spontaneous
  Country: FR (occurrence: FR)
  Receive Date: 20170615
  Receipt Date: 20170622
  Transmission Date: 20170830
  Serious: Yes (Death)
  Sender: FDA-Public Use
  Company Number: FR-JNJFOC-20170610752

PATIENT
  Age: 7 Decade
  Sex: Male

DRUGS (1)
  1. DARZALEX [Suspect]
     Active Substance: DARATUMUMAB
     Indication: PLASMA CELL MYELOMA
     Route: 042
     Dates: start: 20170519

REACTIONS (3)
  - Drug ineffective [Unknown]
  - Disease progression [Fatal]
  - Infection [Fatal]

NARRATIVE: CASE EVENT DATE: 2017
